FAERS Safety Report 8058033-2 (Version None)
Quarter: 2012Q1

REPORT INFORMATION
  Report Type: 
  Country: None (occurrence: None)
  Receive Date: 20120113
  Receipt Date: 20120111
  Transmission Date: 20120608
  Serious: Yes (Life-Threatening)
  Sender: FDA-Public Use
  Company Number: SP05455

PATIENT
  Age: 65 Year
  Sex: Female

DRUGS (1)
  1. MOVIPREP [Suspect]
     Indication: BOWEL PREPARATION
     Dosage: ORAL
     Route: 048
     Dates: start: 20110523, end: 20110523

REACTIONS (5)
  - VOMITING [None]
  - GENERALISED OEDEMA [None]
  - RASH GENERALISED [None]
  - BODY TEMPERATURE INCREASED [None]
  - PAIN [None]
